FAERS Safety Report 9342414 (Version 1)
Quarter: 2013Q2

REPORT INFORMATION
  Report Type: Spontaneous
  Country: GB (occurrence: None)
  Receive Date: 20130607
  Receipt Date: 20130607
  Transmission Date: 20140414
  Serious: Yes (Death, Hospitalization)
  Sender: FDA-Public Use
  Company Number: E2B_00000897

PATIENT
  Age: 75 Year
  Sex: Male

DRUGS (2)
  1. SERTRALINE (UNKNOWN) (SERTRALINE) [Suspect]
     Indication: DEPRESSION
     Route: 048
  2. CLOZARIL [Suspect]
     Indication: SCHIZOPHRENIA
     Route: 048
     Dates: start: 20110701, end: 20130118

REACTIONS (8)
  - Fall [None]
  - Somnolence [None]
  - General physical health deterioration [None]
  - Eosinophil count increased [None]
  - Neutrophil count increased [None]
  - White blood cell count increased [None]
  - Cerebrovascular accident [None]
  - Lung cancer metastatic [None]
